FAERS Safety Report 12056674 (Version 1)
Quarter: 2016Q1

REPORT INFORMATION
  Report Type: Report from Study
  Country: LB (occurrence: LB)
  Receive Date: 20160210
  Receipt Date: 20160210
  Transmission Date: 20160526
  Serious: Yes (Death, Other)
  Sender: FDA-Public Use
  Company Number: LB-ROCHE-1380574

PATIENT

DRUGS (13)
  1. AZATHIOPRINE. [Suspect]
     Active Substance: AZATHIOPRINE
     Dosage: 0.75 MG TO 1.5 MG/KG/DAY,
     Route: 048
  2. ANTILYMPHOCYTE IMMUNOGLOBULIN [Suspect]
     Active Substance: THYMOCYTE IMMUNE GLOBULIN NOS
     Indication: PROPHYLAXIS AGAINST TRANSPLANT REJECTION
     Dosage: 0.15 ML/KG/DAY
     Route: 065
  3. TACROLIMUS. [Suspect]
     Active Substance: TACROLIMUS
     Indication: PROPHYLAXIS AGAINST TRANSPLANT REJECTION
     Route: 065
     Dates: start: 2005
  4. FRAXIPARINE [Concomitant]
     Active Substance: NADROPARIN CALCIUM
  5. PREDNISONE. [Suspect]
     Active Substance: PREDNISONE
     Dosage: ON D30, 15 MG/M2 ON D60 AND 7.5 MG/M2 AT THE END OF SIXTH MONTH AFTER THE TRANSPLANT
     Route: 065
  6. MYCOPHENOLATE MOFETIL. [Suspect]
     Active Substance: MYCOPHENOLATE MOFETIL
     Indication: PROPHYLAXIS AGAINST TRANSPLANT REJECTION
     Route: 065
     Dates: start: 2000
  7. BASILIXIMAB [Suspect]
     Active Substance: BASILIXIMAB
     Indication: PROPHYLAXIS AGAINST TRANSPLANT REJECTION
     Dosage: ON DAY 01
     Route: 065
  8. CICLOSPORIN [Suspect]
     Active Substance: CYCLOSPORINE
     Indication: PROPHYLAXIS AGAINST TRANSPLANT REJECTION
     Dosage: DAY 0 AND DAY 5 (DAY 3 ON AVERAGE), IN TWO OR THREE DAILY ADMINISTRATIONS
     Route: 048
  9. CICLOSPORIN [Suspect]
     Active Substance: CYCLOSPORINE
     Dosage: MICROEMULSION
     Route: 065
  10. AZATHIOPRINE. [Suspect]
     Active Substance: AZATHIOPRINE
     Indication: PROPHYLAXIS AGAINST TRANSPLANT REJECTION
     Dosage: BEFORE THE TRANSPLANT
     Route: 042
  11. PREDNISONE. [Suspect]
     Active Substance: PREDNISONE
     Indication: PROPHYLAXIS AGAINST TRANSPLANT REJECTION
     Route: 048
  12. METHYLPREDNISOLONE. [Suspect]
     Active Substance: METHYLPREDNISOLONE
     Indication: PROPHYLAXIS AGAINST TRANSPLANT REJECTION
     Route: 065
  13. BASILIXIMAB [Suspect]
     Active Substance: BASILIXIMAB
     Dosage: DAY 04
     Route: 065

REACTIONS (12)
  - Herpes virus infection [Unknown]
  - Cytomegalovirus infection [Fatal]
  - Pneumocystis jirovecii infection [Recovering/Resolving]
  - Neoplasm [Unknown]
  - Lymphoma [Fatal]
  - Cytomegalovirus pancreatitis [Recovering/Resolving]
  - Urinary tract infection [Unknown]
  - Epstein-Barr virus associated lymphoma [Fatal]
  - Varicella [Unknown]
  - Infection [Unknown]
  - Interstitial lung disease [Unknown]
  - Infective aneurysm [Unknown]
